FAERS Safety Report 8940165 (Version 2)
Quarter: 2012Q4

REPORT INFORMATION
  Report Type: 
  Country: US (occurrence: US)
  Receive Date: 20121121
  Receipt Date: 20121212
  Transmission Date: 20130627
  Serious: Yes (Death, Hospitalization)
  Sender: FDA-Public Use
  Company Number: US-ASTELLAS-1115225

PATIENT
  Sex: Male

DRUGS (1)
  1. TARCEVA [Suspect]
     Indication: LUNG NEOPLASM MALIGNANT
     Route: 048
     Dates: start: 20091101

REACTIONS (6)
  - Death [Fatal]
  - Lumbar radiculopathy [Unknown]
  - Mucosal inflammation [Unknown]
  - Sepsis [Unknown]
  - Mental status changes [Unknown]
  - Pneumonia [Unknown]
